FAERS Safety Report 6916810-2 (Version None)
Quarter: 2010Q3

REPORT INFORMATION
  Report Type: 
  Country: None (occurrence: None)
  Receive Date: 20100804
  Receipt Date: 20100728
  Transmission Date: 20110219
  Serious: Yes (Hospitalization, Other)
  Sender: FDA-Public Use
  Company Number: AXC-2010-000158

PATIENT
  Age: 78 Year
  Sex: Male

DRUGS (1)
  1. MESALAMINE [Suspect]
     Indication: COLITIS
     Dosage: 1500 MG, QD,; 3000 MG, QD,

REACTIONS (13)
  - ABDOMINAL PAIN [None]
  - ANAL ABSCESS [None]
  - ANAL FISTULA [None]
  - BLOOD CULTURE POSITIVE [None]
  - DEFAECATION URGENCY [None]
  - ESCHERICHIA TEST POSITIVE [None]
  - HAEMOGLOBIN DECREASED [None]
  - LOCAL SWELLING [None]
  - NECROTISING FASCIITIS [None]
  - OEDEMA GENITAL [None]
  - PROCTALGIA [None]
  - SCROTAL PAIN [None]
  - THROMBOCYTOSIS [None]
